FAERS Safety Report 5924394-0 (Version None)
Quarter: 2008Q4

REPORT INFORMATION
  Report Type: 
  Country: None (occurrence: None)
  Receive Date: 20081020
  Receipt Date: 20081017
  Transmission Date: 20090506
  Serious: Yes (Death)
  Sender: FDA-Public Use
  Company Number: US-ASTRAZENECA-2008UW15933

PATIENT
  Age: 1117 Month
  Sex: Female

DRUGS (1)
  1. SEROQUEL [Suspect]
     Indication: DEMENTIA
     Route: 048
     Dates: start: 20020101, end: 20050601

REACTIONS (2)
  - DIABETES MELLITUS [None]
  - PNEUMONIA ASPIRATION [None]
